FAERS Safety Report 20861638 (Version 1)
Quarter: 2022Q2

REPORT INFORMATION
  Report Type: Spontaneous
  Country: US (occurrence: None)
  Receive Date: 20220521
  Receipt Date: 20220521
  Transmission Date: 20220721
  Serious: No
  Sender: FDA-Public Use
  Company Number: None

PATIENT
  Sex: Female
  Weight: 95.25 kg

DRUGS (3)
  1. MIRENA [Suspect]
     Active Substance: LEVONORGESTREL
     Indication: Contraception
     Dates: start: 20150430, end: 20220430
  2. COPPER [Concomitant]
     Active Substance: COPPER
  3. VITAMIN D3 [Concomitant]
     Active Substance: CHOLECALCIFEROL

REACTIONS (7)
  - Hyperaesthesia [None]
  - Stress [None]
  - Insomnia [None]
  - Rash [None]
  - Dry skin [None]
  - Sensitive skin [None]
  - Pruritus [None]
